FAERS Safety Report 9641544 (Version 1)
Quarter: 2013Q4

REPORT INFORMATION
  Report Type: Spontaneous
  Country: US (occurrence: US)
  Receive Date: 20131023
  Receipt Date: 20131023
  Transmission Date: 20140711
  Serious: No
  Sender: FDA-Public Use
  Company Number: US-ALEXION-A201302645

PATIENT
  Age: 31 Year
  Sex: Female

DRUGS (2)
  1. SOLIRIS 300MG [Suspect]
     Indication: PRODUCT USED FOR UNKNOWN INDICATION
     Dosage: 600 MG, QW
     Route: 042
  2. OXYCODONE [Concomitant]
     Indication: HEADACHE
     Dosage: UNK

REACTIONS (1)
  - Headache [Not Recovered/Not Resolved]
